FAERS Safety Report 4424907-4 (Version None)
Quarter: 2004Q3

REPORT INFORMATION
  Report Type: 
  Country: None (occurrence: None)
  Receive Date: 20040719
  Receipt Date: 20030627
  Transmission Date: 20050211
  Serious: Yes (Hospitalization)
  Sender: FDA-Public Use
  Company Number: 174993

PATIENT
  Age: 43 Year
  Sex: Male
  Weight: 86.1834 kg

DRUGS (7)
  1. AVONEX [Suspect]
     Indication: MULTIPLE SCLEROSIS
     Dosage: 30 MCG QW IM
     Route: 030
     Dates: start: 19980101, end: 20020101
  2. AVONEX [Suspect]
     Indication: MULTIPLE SCLEROSIS
     Dosage: 30 MCG QW IM
     Route: 030
     Dates: start: 20020101
  3. BACLOFEN [Concomitant]
  4. DITROPAN [Concomitant]
  5. NEURONTIN [Concomitant]
  6. MITOXANTRONE [Concomitant]
  7. STEROIDS [Concomitant]

REACTIONS (6)
  - HYPERHIDROSIS [None]
  - MULTIPLE SCLEROSIS [None]
  - MULTIPLE SCLEROSIS RELAPSE [None]
  - NEUTROPENIA [None]
  - PYREXIA [None]
  - URINARY TRACT INFECTION [None]
